FAERS Safety Report 8250227-6 (Version None)
Quarter: 2012Q2

REPORT INFORMATION
  Report Type: 
  Country: None (occurrence: None)
  Receive Date: 20120402
  Receipt Date: 20120328
  Transmission Date: 20120825
  Serious: Yes (Death)
  Sender: FDA-Public Use
  Company Number: PH-SANOFI-AVENTIS-2012SA021837

PATIENT
  Age: 35 Year
  Sex: Female
  Weight: 56.2 kg

DRUGS (6)
  1. TRASTUZUMAB [Suspect]
     Dosage: FORM:VIALTOTAL DOSE RECIEVED:336 MG
     Route: 042
     Dates: start: 20110721
  2. FLUOROURACIL [Suspect]
     Dosage: FORM:VIAL
     Route: 042
     Dates: start: 20101104
  3. TRASTUZUMAB [Suspect]
     Dosage: FORM:VIAL
     Route: 042
  4. EPIRUBICIN [Suspect]
     Dosage: FORM:VIALTOTAL DOSE RECIEVED:140 MG
     Route: 042
     Dates: start: 20101104
  5. CYCLOPHOSPHAMIDE [Suspect]
     Dosage: FORM:VIALTOTAL DOSE RECIEVED:936 MG
     Route: 042
     Dates: start: 20101104
  6. DOCETAXEL [Suspect]
     Dosage: FORM:VIALTOTAL DOSE RECIEVED:152 MG
     Route: 042
     Dates: start: 20100902

REACTIONS (1)
  - DEATH [None]
